FAERS Safety Report 5421426-3 (Version None)
Quarter: 2007Q3

REPORT INFORMATION
  Report Type: 
  Country: None (occurrence: None)
  Receive Date: 20070821
  Receipt Date: 20070816
  Transmission Date: 20080115
  Serious: Yes (Hospitalization, Other)
  Sender: FDA-Public Use
  Company Number: AU-BOEHRINGER INGELHEIM PHARMACEUTICALS, INC.-2007-BP-12582AU

PATIENT
  Sex: Female
  Weight: 65 kg

DRUGS (6)
  1. ASPIRIN AND DIPYRIDAMOLE [Suspect]
     Indication: TRANSIENT ISCHAEMIC ATTACK
     Dosage: 200/25 MG
     Route: 048
     Dates: start: 20070615, end: 20070616
  2. ACTONEL [Concomitant]
     Indication: OSTEOPOROTIC FRACTURE
     Route: 048
     Dates: start: 20040101
  3. CALTRATE PLUS D [Concomitant]
     Indication: OSTEOPOROTIC FRACTURE
     Route: 048
     Dates: start: 20040101
  4. TRITACE [Concomitant]
     Indication: HYPERTENSION
     Route: 048
  5. ZOLOFT [Concomitant]
     Indication: DEPRESSION
     Route: 048
     Dates: start: 20000101
  6. FELODIPINE [Concomitant]
     Indication: HYPERTENSION
     Route: 048
     Dates: start: 20000101

REACTIONS (2)
  - ABDOMINAL PAIN [None]
  - VOMITING [None]
